FAERS Safety Report 6986836-1 (Version None)
Quarter: 2010Q3

REPORT INFORMATION
  Report Type: 
  Country: None (occurrence: None)
  Receive Date: 20100915
  Receipt Date: 20090806
  Transmission Date: 20110219
  Serious: No
  Sender: FDA-Public Use
  Company Number: US-WYE-H10521809

PATIENT
  Age: 65 Year
  Sex: Female
  Weight: 77.18 kg

DRUGS (4)
  1. PRISTIQ [Suspect]
     Indication: DEPRESSION
     Route: 048
     Dates: start: 20090803
  2. ALPRAZOLAM [Concomitant]
  3. KLONOPIN [Concomitant]
  4. CYMBALTA [Concomitant]

REACTIONS (7)
  - FATIGUE [None]
  - INSOMNIA [None]
  - NIGHTMARE [None]
  - PAIN [None]
  - PRURITUS [None]
  - THROAT IRRITATION [None]
  - URTICARIA [None]
